FAERS Safety Report 9988093 (Version 2)
Quarter: 2014Q1

REPORT INFORMATION
  Report Type: Spontaneous
  Country: FR (occurrence: FR)
  Receive Date: 20140308
  Receipt Date: 20140326
  Transmission Date: 20141002
  Serious: Yes (Death)
  Sender: FDA-Public Use
  Company Number: FR-AMGEN-FRASP2014015262

PATIENT
  Age: 68 Year
  Sex: Male

DRUGS (8)
  1. XGEVA [Suspect]
     Indication: METASTASES TO BONE
     Dosage: 120 MG, Q4WK
     Route: 058
     Dates: start: 20130905
  2. PREDNISONE [Suspect]
     Indication: PRODUCT USED FOR UNKNOWN INDICATION
     Dosage: 5 MG, BID
     Route: 048
     Dates: start: 20130905, end: 20140220
  3. ZYTIGA [Suspect]
     Indication: PRODUCT USED FOR UNKNOWN INDICATION
     Dosage: 250 MG, QD
     Route: 048
     Dates: start: 20130905, end: 20140218
  4. VITAMIN D3 [Concomitant]
     Dosage: UNK
     Route: 048
     Dates: end: 20140220
  5. PROPANOLOL                         /00030001/ [Concomitant]
     Dosage: UNK UNK, QD
     Route: 048
     Dates: end: 20140220
  6. CALCIUM CARBONATE [Concomitant]
     Dosage: UNK
     Route: 048
     Dates: end: 20140220
  7. PARACETAMOL [Concomitant]
     Dosage: 2 G, UNK
  8. ZOLADEX                            /00732101/ [Concomitant]
     Dosage: 10.8 MG, Q3MO
     Route: 058
     Dates: start: 201104, end: 201312

REACTIONS (1)
  - Hepatitis fulminant [Fatal]
